FAERS Safety Report 11573746 (Version 1)
Quarter: 2015Q3

REPORT INFORMATION
  Report Type: Spontaneous
  Country: US (occurrence: US)
  Receive Date: 20150929
  Receipt Date: 20150929
  Transmission Date: 20151125
  Serious: No
  Sender: FDA-Public Use
  Company Number: US-GLAXOSMITHKLINE-US2015GSK115513

PATIENT
  Age: 21 Month
  Sex: Female

DRUGS (2)
  1. CEFTIN [Suspect]
     Active Substance: CEFUROXIME AXETIL
     Indication: OTITIS MEDIA
     Dosage: 3.2 ML, BID
     Route: 048
     Dates: start: 20150716
  2. CEFTIN [Suspect]
     Active Substance: CEFUROXIME AXETIL
     Indication: PNEUMONIA

REACTIONS (2)
  - Drug dose omission [Unknown]
  - Product taste abnormal [Unknown]
